FAERS Safety Report 22110572 (Version 1)
Quarter: 2023Q1

REPORT INFORMATION
  Report Type: Spontaneous
  Country: US (occurrence: None)
  Receive Date: 20230317
  Receipt Date: 20230317
  Transmission Date: 20230418
  Serious: Yes (Hospitalization)
  Sender: FDA-Public Use
  Company Number: None

PATIENT
  Age: 50 Year
  Sex: Female

DRUGS (1)
  1. SORAFENIB TOSYLATE [Suspect]
     Active Substance: SORAFENIB TOSYLATE
     Indication: Thyroid cancer
     Dosage: OTHER FREQUENCY : 2TABS,2TIMEDAILY;?
     Route: 048
     Dates: start: 20221101

REACTIONS (1)
  - Thyroid cancer recurrent [None]

NARRATIVE: CASE EVENT DATE: 20230316
